FAERS Safety Report 17752186 (Version 1)
Quarter: 2020Q2

REPORT INFORMATION
  Report Type: Spontaneous
  Country: US (occurrence: US)
  Receive Date: 20200506
  Receipt Date: 20200506
  Transmission Date: 20200714
  Serious: Yes (Other)
  Sender: FDA-Public Use
  Company Number: US-MYLANLABS-2020M1044848

PATIENT
  Age: 59 Year
  Sex: Male

DRUGS (16)
  1. OXALIPLATIN. [Concomitant]
     Active Substance: OXALIPLATIN
     Indication: HIGH-GRADE B-CELL LYMPHOMA
     Dosage: PALLIATIVE THERAPY; ADMINISTERED 2 CYCLES
     Route: 065
  2. RITUXIMAB. [Concomitant]
     Active Substance: RITUXIMAB
     Indication: DRUG THERAPY
     Dosage: MATRIX REGIMEN
     Route: 065
  3. LISOCABTAGENE MARALEUCEL. [Concomitant]
     Active Substance: LISOCABTAGENE MARALEUCEL
     Indication: HIGH-GRADE B-CELL LYMPHOMA
     Route: 065
  4. CYTARABINE. [Concomitant]
     Active Substance: CYTARABINE
     Indication: DRUG THERAPY
     Route: 065
  5. THIOTEPA. [Concomitant]
     Active Substance: THIOTEPA
     Indication: DRUG THERAPY
     Route: 065
  6. CYCLOPHOSPHAMIDE. [Suspect]
     Active Substance: CYCLOPHOSPHAMIDE
     Indication: HIGH-GRADE B-CELL LYMPHOMA
     Dosage: ADMINISTERED 6 CYCLES OF EPOCH CHEMOIMMUNOTHERAPY
     Route: 065
  7. CYCLOPHOSPHAMIDE. [Suspect]
     Active Substance: CYCLOPHOSPHAMIDE
     Dosage: LYMPHODEPLETION THERAPY
     Route: 065
  8. ETOPOSIDE. [Concomitant]
     Active Substance: ETOPOSIDE
     Indication: HIGH-GRADE B-CELL LYMPHOMA
     Dosage: ADMINISTERED 6 CYCLES OF EPOCH CHEMOIMMUNOTHERAPY
     Route: 065
  9. VINCRISTINE [Concomitant]
     Active Substance: VINCRISTINE
     Indication: HIGH-GRADE B-CELL LYMPHOMA
     Dosage: ADMINISTERED 6 CYCLES OF EPOCH CHEMOIMMUNOTHERAPY
     Route: 065
  10. FLUDARABINE [Suspect]
     Active Substance: FLUDARABINE PHOSPHATE
     Indication: HIGH-GRADE B-CELL LYMPHOMA
     Dosage: LYMPHODEPLETION THERAPY
     Route: 065
  11. RITUXIMAB. [Concomitant]
     Active Substance: RITUXIMAB
     Indication: HIGH-GRADE B-CELL LYMPHOMA
     Dosage: ADMINISTERED 6 CYCLES OF CHEMOIMMUNOTHERAPY
     Route: 065
  12. PREDNISONE. [Suspect]
     Active Substance: PREDNISONE
     Indication: HIGH-GRADE B-CELL LYMPHOMA
     Dosage: ADMINISTERED 6 CYCLES OF EPOCH CHEMOIMMUNOTHERAPY
     Route: 065
  13. DEXAMETHASONE. [Suspect]
     Active Substance: DEXAMETHASONE
     Indication: HIGH-GRADE B-CELL LYMPHOMA
     Dosage: PALLIATIVE THERAPY WITH PULSE HIGH-DOSE OF DEXAMETHASONE
     Route: 065
  14. DOXORUBICIN [Concomitant]
     Active Substance: DOXORUBICIN
     Indication: HIGH-GRADE B-CELL LYMPHOMA
     Dosage: ADMINISTERED 6 CYCLES OF EPOCH CHEMOIMMUNOTHERAPY
     Route: 065
  15. GEMCITABINE. [Concomitant]
     Active Substance: GEMCITABINE
     Indication: HIGH-GRADE B-CELL LYMPHOMA
     Dosage: PALLIATIVE THERAPY; ADMINISTERED 2 CYCLES
     Route: 065
  16. METHOTREXATE. [Concomitant]
     Active Substance: METHOTREXATE
     Indication: DRUG THERAPY
     Route: 065

REACTIONS (7)
  - Pancytopenia [Not Recovered/Not Resolved]
  - Vision blurred [Unknown]
  - Balance disorder [Unknown]
  - Hemiparesis [Not Recovered/Not Resolved]
  - Urinary incontinence [Unknown]
  - Cataract [Not Recovered/Not Resolved]
  - Bone marrow failure [Unknown]
